FAERS Safety Report 4732933-0 (Version None)
Quarter: 2005Q3

REPORT INFORMATION
  Report Type: 
  Country: None (occurrence: None)
  Receive Date: 20050803
  Receipt Date: 20050603
  Transmission Date: 20060218
  Serious: No
  Sender: FDA-Public Use
  Company Number: US-GLAXOSMITHKLINE-A0561137A

PATIENT
  Age: 54 Year
  Sex: Female

DRUGS (4)
  1. AVANDAMET [Suspect]
     Dosage: 1MG PER DAY
     Route: 048
     Dates: start: 20040801
  2. STARLIX [Concomitant]
  3. COREG [Concomitant]
  4. INSULIN NOVOLIN [Concomitant]

REACTIONS (4)
  - BLOOD GLUCOSE INCREASED [None]
  - HEART RATE INCREASED [None]
  - JOINT SWELLING [None]
  - WEIGHT DECREASED [None]
